FAERS Safety Report 9064581 (Version 2)
Quarter: 2013Q2

REPORT INFORMATION
  Report Type: Spontaneous
  Country: US (occurrence: US)
  Receive Date: 20130214
  Receipt Date: 20130412
  Transmission Date: 20140414
  Serious: Yes (Hospitalization)
  Sender: FDA-Public Use
  Company Number: US-BIOGENIDEC-2013BI014907

PATIENT
  Sex: Male

DRUGS (6)
  1. AVONEX [Suspect]
     Indication: MULTIPLE SCLEROSIS
     Route: 030
     Dates: start: 20111024, end: 20111114
  2. PLAVIX [Concomitant]
  3. BABY ASPIRIN [Concomitant]
  4. INSULIN [Concomitant]
  5. B12 [Concomitant]
  6. DILAUDID [Concomitant]

REACTIONS (1)
  - Cardiac disorder [Not Recovered/Not Resolved]
